FAERS Safety Report 4459298-6 (Version None)
Quarter: 2004Q3

REPORT INFORMATION
  Report Type: 
  Country: None (occurrence: None)
  Receive Date: 20040922
  Receipt Date: 20040922
  Transmission Date: 20050211
  Serious: Yes (Death)
  Sender: FDA-Public Use
  Company Number: None

PATIENT
  Sex: Male
  Weight: 79.8331 kg

DRUGS (14)
  1. CLOZAPINE [Suspect]
     Indication: BIPOLAR DISORDER
     Dosage: SEE IMAGE
     Route: 048
     Dates: start: 20010417, end: 20040815
  2. CLOZAPINE [Suspect]
     Indication: SCHIZOAFFECTIVE DISORDER
     Dosage: SEE IMAGE
     Route: 048
     Dates: start: 20010417, end: 20040815
  3. CLOZAPINE [Suspect]
     Indication: BIPOLAR DISORDER
     Dosage: SEE IMAGE
     Route: 048
     Dates: start: 20010417, end: 20040815
  4. CLOZAPINE [Suspect]
     Indication: SCHIZOAFFECTIVE DISORDER
     Dosage: SEE IMAGE
     Route: 048
     Dates: start: 20010417, end: 20040815
  5. GEODON [Concomitant]
  6. BENZTROPIN [Concomitant]
  7. NITROGLYCERIN [Concomitant]
  8. DOCUSATE SODIUM [Concomitant]
  9. SYNTHROID [Concomitant]
  10. METAMUCIL-2 [Concomitant]
  11. DEPAKOTE [Concomitant]
  12. BISACODYL [Concomitant]
  13. ASPIRIN [Concomitant]
  14. CLONIDINE HCL [Concomitant]

REACTIONS (13)
  - ABDOMINAL PAIN UPPER [None]
  - CARDIO-RESPIRATORY ARREST [None]
  - CONSTIPATION [None]
  - FAECALOMA [None]
  - GASTROINTESTINAL MOTILITY DISORDER [None]
  - INFREQUENT BOWEL MOVEMENTS [None]
  - INTESTINAL OBSTRUCTION [None]
  - PNEUMONIA ASPIRATION [None]
  - RESTLESSNESS [None]
  - SEPSIS [None]
  - SKIN DISCOLOURATION [None]
  - URINARY RETENTION [None]
  - URINE OUTPUT INCREASED [None]
